FAERS Safety Report 4530567-4 (Version None)
Quarter: 2004Q4

REPORT INFORMATION
  Report Type: 
  Country: None (occurrence: None)
  Receive Date: 20041217
  Receipt Date: 20041217
  Transmission Date: 20050328
  Serious: Yes (Hospitalization)
  Sender: FDA-Public Use
  Company Number: None

PATIENT
  Sex: Female
  Weight: 96.1626 kg

DRUGS (2)
  1. PACLITAXEL [Suspect]
     Indication: CHEMOTHERAPY
     Dosage: 100 MG/M2  WEEKLY X 3 INTRAVENOUS
     Route: 042
     Dates: start: 20040414, end: 20040526
  2. CARBOPLATIN [Suspect]
     Indication: CHEMOTHERAPY
     Dosage: AUC 6  ONCE Q 4 WEEKS INTRAVENOUS
     Route: 042
     Dates: start: 20040414, end: 20040526

REACTIONS (7)
  - COMPRESSION FRACTURE [None]
  - DYSPHAGIA [None]
  - DYSPNOEA [None]
  - PANCYTOPENIA [None]
  - RADIATION FIBROSIS - LUNG [None]
  - THORACIC VERTEBRAL FRACTURE [None]
  - URINARY RETENTION [None]
